FAERS Safety Report 15940131 (Version 1)
Quarter: 2019Q1

REPORT INFORMATION
  Report Type: Spontaneous
  Country: US (occurrence: US)
  Receive Date: 20190208
  Receipt Date: 20190208
  Transmission Date: 20190417
  Serious: Yes (Other)
  Sender: FDA-Public Use
  Company Number: US-AKRON, INC.-2062409

PATIENT
  Age: 30 Year
  Sex: Male

DRUGS (1)
  1. DEHYDRATED ALCOHOL [Suspect]
     Active Substance: ALCOHOL
     Indication: DEBRIDEMENT
     Route: 051
     Dates: start: 20190118, end: 20190118

REACTIONS (5)
  - Product use in unapproved indication [None]
  - Impaired healing [Recovering/Resolving]
  - Eye swelling [Unknown]
  - Corneal opacity [Unknown]
  - Ocular hyperaemia [Unknown]

NARRATIVE: CASE EVENT DATE: 20190118
